FAERS Safety Report 6845251-1 (Version None)
Quarter: 2010Q3

REPORT INFORMATION
  Report Type: 
  Country: None (occurrence: None)
  Receive Date: 20100715
  Receipt Date: 20070815
  Transmission Date: 20110219
  Serious: No
  Sender: FDA-Public Use
  Company Number: US-PFIZER INC-2007069221

PATIENT
  Sex: Female
  Weight: 54.5 kg

DRUGS (8)
  1. CHANTIX [Suspect]
     Indication: SMOKING CESSATION THERAPY
     Dates: start: 20070807
  2. CELEBREX [Concomitant]
  3. ATENOLOL [Concomitant]
  4. TYLENOL [Concomitant]
  5. NEXIUM [Concomitant]
  6. TERIPARATIDE [Concomitant]
  7. VITAMIN C [Concomitant]
  8. MULTI-VITAMINS [Concomitant]

REACTIONS (3)
  - ABNORMAL FAECES [None]
  - POLLAKIURIA [None]
  - SLEEP DISORDER [None]
